FAERS Safety Report 7929541-7 (Version None)
Quarter: 2011Q4

REPORT INFORMATION
  Report Type: 
  Country: None (occurrence: None)
  Receive Date: 20111121
  Receipt Date: 20111109
  Transmission Date: 20120403
  Serious: Yes (Death, Hospitalization)
  Sender: FDA-Public Use
  Company Number: US-JNJFOC-20111104121

PATIENT
  Sex: Female

DRUGS (11)
  1. BENADRYL [Concomitant]
     Route: 065
  2. NYSTATIN [Concomitant]
     Route: 065
  3. IRON [Concomitant]
     Route: 065
  4. MULTI-VITAMINS [Concomitant]
     Route: 065
  5. LACTOBACILLUS [Concomitant]
     Route: 065
  6. ACETAMINOPHEN [Concomitant]
     Route: 065
  7. STEROIDS NOS [Concomitant]
     Route: 065
  8. REMICADE [Suspect]
     Indication: CROHN'S DISEASE
     Route: 042
  9. ALPRAZOLAM [Concomitant]
     Route: 065
  10. LIDOCAINE [Concomitant]
     Route: 061
  11. LOTRIMIN [Concomitant]
     Route: 065

REACTIONS (5)
  - PHARYNGEAL ABSCESS [None]
  - PERITONEAL HAEMORRHAGE [None]
  - DYSPNOEA [None]
  - ARTHRALGIA [None]
  - HAEMOGLOBIN DECREASED [None]
